FAERS Safety Report 4565114-4 (Version None)
Quarter: 2005Q1

REPORT INFORMATION
  Report Type: 
  Country: None (occurrence: None)
  Receive Date: 20050110
  Receipt Date: 20050110
  Transmission Date: 20050727
  Serious: No
  Sender: FDA-Public Use
  Company Number: None

PATIENT
  Age: 84 Year
  Sex: Female

DRUGS (1)
  1. PREDNISOLONE ACETATE [Suspect]
     Indication: HERPES ZOSTER IRIDOCYCLITIS
     Dosage: ONE GTT OD BID
     Dates: start: 20040708

REACTIONS (3)
  - DISEASE RECURRENCE [None]
  - DRUG EFFECT DECREASED [None]
  - IRITIS [None]
